FAERS Safety Report 5203701-0 (Version None)
Quarter: 2007Q1

REPORT INFORMATION
  Report Type: 
  Country: None (occurrence: None)
  Receive Date: 20070105
  Receipt Date: 20070105
  Transmission Date: 20070707
  Serious: Yes (Hospitalization)
  Sender: FDA-Public Use
  Company Number: None

PATIENT
  Sex: Male
  Weight: 75.7507 kg

DRUGS (15)
  1. BEVACIZUMAB [Suspect]
     Indication: NON-SMALL CELL LUNG CANCER STAGE IV
     Dosage: 15 MG/KG EVERY 3 WEEKS IV
     Route: 042
     Dates: start: 20061017
  2. BEVACIZUMAB [Suspect]
     Indication: NON-SMALL CELL LUNG CANCER STAGE IV
     Dosage: 15 MG/KG EVERY 3 WEEKS IV
     Route: 042
     Dates: start: 20061129
  3. BEVACIZUMAB [Suspect]
  4. COUMADIN [Concomitant]
  5. OXYCONTIN [Concomitant]
  6. ATIVAN [Concomitant]
  7. ZOFRAN [Concomitant]
  8. OXYCODONE HCL [Concomitant]
  9. DEXMETHASONE [Concomitant]
  10. PACLITAXEL [Concomitant]
  11. TAXOTERE [Concomitant]
  12. CARBOPLATIN [Concomitant]
  13. ZOMETA [Concomitant]
  14. NEULASTA [Concomitant]
  15. ARANESP [Concomitant]

REACTIONS (1)
  - PULMONARY EMBOLISM [None]
